FAERS Safety Report 6993823-6 (Version None)
Quarter: 2010Q3

REPORT INFORMATION
  Report Type: 
  Country: None (occurrence: None)
  Receive Date: 20100917
  Receipt Date: 20100420
  Transmission Date: 20110219
  Serious: No
  Sender: FDA-Public Use
  Company Number: US-ASTRAZENECA-2010SE17776

PATIENT
  Sex: Female

DRUGS (2)
  1. SEROQUEL [Suspect]
     Indication: MOOD SWINGS
     Route: 048
  2. SEROQUEL [Suspect]
     Indication: INSOMNIA
     Route: 048

REACTIONS (4)
  - DRUG DOSE OMISSION [None]
  - INSOMNIA [None]
  - MANIA [None]
  - THERAPEUTIC RESPONSE UNEXPECTED WITH DRUG SUBSTITUTION [None]
